FAERS Safety Report 12915133 (Version 1)
Quarter: 2016Q4

REPORT INFORMATION
  Report Type: Spontaneous
  Country: US (occurrence: US)
  Receive Date: 20161106
  Receipt Date: 20161106
  Transmission Date: 20170207
  Serious: Yes (Other)
  Sender: FDA-Public Use
  Company Number: US-AMGEN-USASP2016154507

PATIENT
  Age: 81 Year
  Sex: Female

DRUGS (2)
  1. NEUPOGEN [Concomitant]
     Active Substance: FILGRASTIM
     Dosage: 480 MCG, ONCE DAILY
     Dates: start: 20161101
  2. NEULASTA [Suspect]
     Active Substance: PEGFILGRASTIM
     Indication: PRODUCT USED FOR UNKNOWN INDICATION
     Dosage: UNK
     Route: 065

REACTIONS (5)
  - Application site haemorrhage [Unknown]
  - White blood cell count abnormal [Unknown]
  - Wrong technique in product usage process [Unknown]
  - Drug dose omission [Unknown]
  - Neutropenia [Unknown]

NARRATIVE: CASE EVENT DATE: 201610
